FAERS Safety Report 4510562-1 (Version None)
Quarter: 2004Q4

REPORT INFORMATION
  Report Type: 
  Country: None (occurrence: None)
  Receive Date: 20041122
  Receipt Date: 20041108
  Transmission Date: 20050328
  Serious: Yes (Hospitalization, Other)
  Sender: FDA-Public Use
  Company Number: A-CH2004-08043

PATIENT
  Age: 72 Year
  Sex: Female

DRUGS (2)
  1. TRACLEER [Suspect]
     Indication: PULMONARY HYPERTENSION
     Dosage: ORAL
     Route: 048
  2. CLOPIDOGREL (CLOPIDOGREL) [Concomitant]

REACTIONS (3)
  - CARDIAC ENZYMES INCREASED [None]
  - MYOCARDITIS [None]
  - PERICARDITIS [None]
